FAERS Safety Report 9629906 (Version 2)
Quarter: 2013Q4

REPORT INFORMATION
  Report Type: Spontaneous
  Country: US (occurrence: US)
  Receive Date: 20131017
  Receipt Date: 20131017
  Transmission Date: 20140711
  Serious: Yes (Hospitalization)
  Sender: FDA-Public Use
  Company Number: US-B.I. PHARMACEUTICALS,INC./RIDGEFIELD-2013-BI-13175BP

PATIENT
  Age: 78 Year
  Sex: Male
  Weight: 117.93 kg

DRUGS (24)
  1. PRADAXA [Suspect]
     Indication: ANTICOAGULANT THERAPY
     Dosage: 300 MG
     Route: 048
     Dates: start: 20110617, end: 20120412
  2. ALDACTONE [Concomitant]
     Dosage: 25 MG
  3. JANUMET [Concomitant]
  4. NORVASC [Concomitant]
  5. ASPIRIN [Concomitant]
     Dosage: 81 MG
  6. ALLOPURINOL [Concomitant]
  7. NEXIUM [Concomitant]
  8. DUONEB [Concomitant]
  9. BETHANECHOL [Concomitant]
  10. FLEXERIL [Concomitant]
     Dosage: 10 MG
  11. REGLAN [Concomitant]
     Dosage: 10 MG
  12. PROVEX CV [Concomitant]
  13. FLONASE [Concomitant]
  14. ADVAIR [Concomitant]
     Route: 055
  15. FLOMAX [Concomitant]
     Dosage: 0.4 MG
  16. LANTUS [Concomitant]
     Dosage: 100 U
  17. APIDRA [Concomitant]
  18. ALLEGRA [Concomitant]
     Dosage: 120 MG
  19. PERCOCET [Concomitant]
  20. INDOMETHACIN [Concomitant]
     Dosage: 100 MG
  21. LASIX [Concomitant]
     Dosage: 40 MG
  22. VITAMIN D [Concomitant]
  23. REVATIO [Concomitant]
     Dosage: 60 MG
  24. TRACLEER [Concomitant]
     Dosage: 24 MG

REACTIONS (7)
  - Gastrointestinal haemorrhage [Unknown]
  - Anaemia [Unknown]
  - Urinary tract infection [Unknown]
  - Renal failure acute [Unknown]
  - Respiratory distress [Unknown]
  - Haemoptysis [Unknown]
  - Haematoma [Unknown]
